FAERS Safety Report 9922085 (Version 1)
Quarter: 2014Q1

REPORT INFORMATION
  Report Type: Spontaneous
  Country: US (occurrence: None)
  Receive Date: 20140224
  Receipt Date: 20140224
  Transmission Date: 20141002
  Serious: Yes (Hospitalization)
  Sender: FDA-Public Use
  Company Number: None

PATIENT
  Age: 79 Year
  Sex: Male
  Weight: 91.5 kg

DRUGS (1)
  1. AZACITIDINE [Suspect]

REACTIONS (6)
  - Fatigue [None]
  - Asthenia [None]
  - Hypotension [None]
  - Neutropenia [None]
  - Pseudomonal bacteraemia [None]
  - Septic shock [None]
